FAERS Safety Report 7356176-X (Version None)
Quarter: 2011Q1

REPORT INFORMATION
  Report Type: 
  Country: None (occurrence: None)
  Receive Date: 20110316
  Receipt Date: 20110309
  Transmission Date: 20110831
  Serious: Yes (Hospitalization)
  Sender: FDA-Public Use
  Company Number: ES-PFIZER INC-2011037245

PATIENT
  Age: 42 Year
  Sex: Female

DRUGS (1)
  1. SALAZOPYRIN [Suspect]
     Dosage: 500 MG, UNK
     Route: 048
     Dates: start: 20110128

REACTIONS (2)
  - STEVENS-JOHNSON SYNDROME [None]
  - BLINDNESS [None]
